FAERS Safety Report 18064669 (Version 1)
Quarter: 2020Q3

REPORT INFORMATION
  Report Type: Spontaneous
  Country: US (occurrence: US)
  Receive Date: 20200723
  Receipt Date: 20200723
  Transmission Date: 20201103
  Serious: Yes (Hospitalization)
  Sender: FDA-Public Use
  Company Number: None

PATIENT
  Age: 66 Year
  Sex: Male
  Weight: 74.39 kg

DRUGS (2)
  1. ATORVASTATIN (ATORVASTATIN CA 80MG TAB) [Suspect]
     Active Substance: ATORVASTATIN
     Indication: HYPERLIPIDAEMIA
     Route: 048
     Dates: start: 20141216, end: 20150617
  2. ATORVASTATIN (ATORVASTATIN CA 80MG TAB) [Suspect]
     Active Substance: ATORVASTATIN
     Indication: CARDIAC OPERATION
     Route: 048
     Dates: start: 20141216, end: 20150617

REACTIONS (1)
  - Rhabdomyolysis [None]

NARRATIVE: CASE EVENT DATE: 20150417
